FAERS Safety Report 8365778-3 (Version None)
Quarter: 2012Q2

REPORT INFORMATION
  Report Type: 
  Country: None (occurrence: None)
  Receive Date: 20120517
  Receipt Date: 20120511
  Transmission Date: 20120825
  Serious: Yes (Hospitalization)
  Sender: FDA-Public Use
  Company Number: US-AMGEN-USASP2012029942

PATIENT
  Age: 57 Year

DRUGS (2)
  1. ENBREL [Suspect]
     Indication: RHEUMATOID ARTHRITIS
     Dosage: 50 MG, QWK
     Dates: start: 20040101
  2. TREXALL [Concomitant]
     Dosage: UNK

REACTIONS (5)
  - BONE PAIN [None]
  - APHAGIA [None]
  - HEADACHE [None]
  - PAIN [None]
  - INJECTION SITE PAIN [None]
